FAERS Safety Report 16739941 (Version 7)
Quarter: 2020Q3

REPORT INFORMATION
  Report Type: Spontaneous
  Country: US (occurrence: US)
  Receive Date: 20190826
  Receipt Date: 20200708
  Transmission Date: 20201105
  Serious: Yes (Death, Hospitalization, Other)
  Sender: FDA-Public Use
  Company Number: US-CELGENEUS-USA-20190807670

PATIENT
  Age: 70 Year
  Sex: Female
  Weight: 66.6 kg

DRUGS (40)
  1. GEMCITABINE. [Suspect]
     Active Substance: GEMCITABINE
     Dosage: 1000 MILLIGRAM/SQ. METER
     Route: 065
     Dates: start: 20190409, end: 20190409
  2. OLECLUMAB. [Suspect]
     Active Substance: OLECLUMAB
     Dosage: 3000 MILLIGRAM
     Route: 042
     Dates: start: 20190409, end: 20190409
  3. VITAMIN D3 [Concomitant]
     Active Substance: CHOLECALCIFEROL
     Indication: PROPHYLAXIS
     Dosage: 2000 IU (INTERNATIONAL UNIT)
     Route: 048
     Dates: start: 20190501
  4. ABRAXANE [Suspect]
     Active Substance: PACLITAXEL
     Indication: PANCREATIC CARCINOMA METASTATIC
     Dosage: 125 MILLIGRAM/SQ. METER
     Route: 041
     Dates: start: 20190312, end: 20190312
  5. ABRAXANE [Suspect]
     Active Substance: PACLITAXEL
     Dosage: 125 MILLIGRAM/SQ. METER
     Route: 041
     Dates: start: 20190409, end: 20190409
  6. ABRAXANE [Suspect]
     Active Substance: PACLITAXEL
     Dosage: 125 MILLIGRAM/SQ. METER
     Route: 041
     Dates: start: 20190827, end: 20190827
  7. OLECLUMAB. [Suspect]
     Active Substance: OLECLUMAB
     Dosage: 3000 MILLIGRAM
     Route: 042
     Dates: start: 20190827, end: 20190827
  8. PARACETAMOL [Concomitant]
     Active Substance: ACETAMINOPHEN
     Indication: BACK PAIN
  9. ABRAXANE [Suspect]
     Active Substance: PACLITAXEL
     Dosage: 125 MILLIGRAM/SQ. METER
     Route: 041
     Dates: start: 20190730, end: 20190730
  10. GEMCITABINE. [Suspect]
     Active Substance: GEMCITABINE
     Dosage: 1000 MILLIGRAM/SQ. METER
     Route: 065
     Dates: start: 20190507, end: 20190507
  11. GEMCITABINE. [Suspect]
     Active Substance: GEMCITABINE
     Dosage: 1000 MILLIGRAM/SQ. METER
     Route: 065
     Dates: start: 20190702, end: 20190702
  12. GEMCITABINE. [Suspect]
     Active Substance: GEMCITABINE
     Dosage: 1000 MILLIGRAM/SQ. METER
     Route: 065
     Dates: start: 20190716, end: 20190716
  13. OLECLUMAB. [Suspect]
     Active Substance: OLECLUMAB
     Indication: PANCREATIC CARCINOMA METASTATIC
     Dosage: 3000 MILLIGRAM
     Route: 042
     Dates: start: 20190312, end: 20190312
  14. OLECLUMAB. [Suspect]
     Active Substance: OLECLUMAB
     Dosage: 3000 MILLIGRAM
     Route: 042
     Dates: start: 20190507, end: 20190507
  15. VITAMIN E [Concomitant]
     Active Substance: .ALPHA.-TOCOPHEROL
     Indication: PROPHYLAXIS
     Dosage: 1000 IU (INTERNATIONAL UNIT)
     Route: 048
     Dates: start: 20190423
  16. CALCIUM WITH VITAMIN D [Concomitant]
     Active Substance: CALCIUM\VITAMIN D
     Indication: HYPOCALCAEMIA
     Dosage: 10 DOSAGE FORMS
     Route: 048
     Dates: start: 20190423
  17. ABRAXANE [Suspect]
     Active Substance: PACLITAXEL
     Dosage: 125 MILLIGRAM/SQ. METER
     Route: 041
     Dates: start: 20190319, end: 20190319
  18. ABRAXANE [Suspect]
     Active Substance: PACLITAXEL
     Dosage: 125 MILLIGRAM/SQ. METER
     Route: 041
     Dates: start: 20190702, end: 20190702
  19. GEMCITABINE. [Suspect]
     Active Substance: GEMCITABINE
     Indication: PANCREATIC CARCINOMA METASTATIC
     Dosage: 1000 MILLIGRAM/SQ. METER
     Route: 065
     Dates: start: 20190312, end: 20190312
  20. GEMCITABINE. [Suspect]
     Active Substance: GEMCITABINE
     Dosage: 1000 MILLIGRAM/SQ. METER
     Route: 065
     Dates: start: 20190521, end: 20190521
  21. GEMCITABINE. [Suspect]
     Active Substance: GEMCITABINE
     Dosage: 1000 MILLIGRAM/SQ. METER
     Route: 065
     Dates: start: 20190618, end: 20190618
  22. GEMCITABINE. [Suspect]
     Active Substance: GEMCITABINE
     Dosage: 1000 MILLIGRAM/SQ. METER
     Route: 065
     Dates: start: 20190827, end: 20190827
  23. OLECLUMAB. [Suspect]
     Active Substance: OLECLUMAB
     Dosage: 3000 MILLIGRAM
     Route: 042
     Dates: start: 20190326, end: 20190326
  24. OLECLUMAB. [Suspect]
     Active Substance: OLECLUMAB
     Dosage: 3000 MILLIGRAM
     Route: 042
     Dates: start: 20190604, end: 20190604
  25. PARACETAMOL [Concomitant]
     Active Substance: ACETAMINOPHEN
     Indication: CHEST PAIN
     Dosage: 650 MILLIGRAM
     Route: 048
     Dates: start: 20190211
  26. OMEPRAZOLE. [Concomitant]
     Active Substance: OMEPRAZOLE
     Indication: GASTROOESOPHAGEAL REFLUX DISEASE
     Dosage: 20 MILLIGRAM
     Route: 048
     Dates: start: 2009
  27. ABRAXANE [Suspect]
     Active Substance: PACLITAXEL
     Dosage: 125 MILLIGRAM/SQ. METER
     Route: 041
     Dates: start: 20190521, end: 20190521
  28. ABRAXANE [Suspect]
     Active Substance: PACLITAXEL
     Dosage: 125 MILLIGRAM/SQ. METER
     Route: 041
     Dates: start: 20190618, end: 20190618
  29. GEMCITABINE. [Suspect]
     Active Substance: GEMCITABINE
     Dosage: 1000 MILLIGRAM/SQ. METER
     Route: 065
     Dates: start: 20190423, end: 20190423
  30. GEMCITABINE. [Suspect]
     Active Substance: GEMCITABINE
     Dosage: 1000 MILLIGRAM/SQ. METER
     Route: 065
     Dates: start: 20190604, end: 20190604
  31. GEMCITABINE. [Suspect]
     Active Substance: GEMCITABINE
     Dosage: 1000 MILLIGRAM/SQ. METER
     Route: 065
     Dates: start: 20190730, end: 20190730
  32. OLECLUMAB. [Suspect]
     Active Substance: OLECLUMAB
     Dosage: 3000 MILLIGRAM
     Route: 042
     Dates: start: 20190423, end: 20190423
  33. POLYETHYLENE GLYCOL [Concomitant]
     Active Substance: POLYETHYLENE GLYCOLS
     Indication: CONSTIPATION
     Dosage: 17 GRAM
     Route: 048
     Dates: start: 2019
  34. ABRAXANE [Suspect]
     Active Substance: PACLITAXEL
     Dosage: 125 MILLIGRAM/SQ. METER
     Route: 041
     Dates: start: 20190423, end: 20190423
  35. OLECLUMAB. [Suspect]
     Active Substance: OLECLUMAB
     Dosage: 3000 MILLIGRAM
     Route: 042
     Dates: start: 20190702, end: 20190702
  36. OLECLUMAB. [Suspect]
     Active Substance: OLECLUMAB
     Dosage: 3000 MILLIGRAM
     Route: 042
     Dates: start: 20190730, end: 20190730
  37. ABRAXANE [Suspect]
     Active Substance: PACLITAXEL
     Dosage: 125 MILLIGRAM/SQ. METER
     Route: 041
     Dates: start: 20190507, end: 20190507
  38. ABRAXANE [Suspect]
     Active Substance: PACLITAXEL
     Dosage: 125 MILLIGRAM/SQ. METER
     Route: 041
     Dates: start: 20190604, end: 20190604
  39. ABRAXANE [Suspect]
     Active Substance: PACLITAXEL
     Dosage: 125 MILLIGRAM/SQ. METER
     Route: 041
     Dates: start: 20190716, end: 20190716
  40. GEMCITABINE. [Suspect]
     Active Substance: GEMCITABINE
     Dosage: 1000 MILLIGRAM/SQ. METER
     Route: 065
     Dates: start: 20190319, end: 20190319

REACTIONS (3)
  - Small intestinal obstruction [Recovered/Resolved]
  - Pyrexia [Unknown]
  - Pancreatic carcinoma metastatic [Fatal]

NARRATIVE: CASE EVENT DATE: 20190812
